FAERS Safety Report 9571178 (Version 3)
Quarter: 2013Q4

REPORT INFORMATION
  Report Type: Spontaneous
  Country: JP (occurrence: JP)
  Receive Date: 20131001
  Receipt Date: 20131104
  Transmission Date: 20140711
  Serious: Yes (Death, Hospitalization)
  Sender: FDA-Public Use
  Company Number: PHHY2013JP108889

PATIENT
  Age: 89 Year
  Sex: Male

DRUGS (4)
  1. GLIVEC [Suspect]
     Indication: CHRONIC MYELOID LEUKAEMIA
     Dosage: 350 MG, DAILY (300 MG DAILY AND 400 MG DAILY ON ALTERNATE DAYS)
     Route: 048
     Dates: start: 20100520, end: 20130823
  2. MUCOSTA [Concomitant]
     Dosage: UNK UKN, UNK
  3. URSO [Concomitant]
     Dosage: UNK UKN, UNK
     Route: 048
  4. BERIZYM [Concomitant]
     Dosage: UNK UKN, UNK
     Route: 048

REACTIONS (2)
  - Completed suicide [Fatal]
  - Alcoholic pancreatitis [Unknown]
